FAERS Safety Report 12787443 (Version 3)
Quarter: 2017Q1

REPORT INFORMATION
  Report Type: Spontaneous
  Country: US (occurrence: US)
  Receive Date: 20160928
  Receipt Date: 20170217
  Transmission Date: 20170428
  Serious: No
  Sender: FDA-Public Use
  Company Number: US-TEVA-689965ACC

PATIENT
  Age: 22 Year
  Sex: Female
  Weight: 59.02 kg

DRUGS (1)
  1. PLAN B ONE-STEP [Suspect]
     Active Substance: LEVONORGESTREL
     Indication: POST COITAL CONTRACEPTION
     Dates: start: 20160814, end: 20160814

REACTIONS (8)
  - Breast discomfort [Unknown]
  - Hypomenorrhoea [Recovered/Resolved]
  - Menstruation irregular [Recovered/Resolved]
  - Polymenorrhoea [Recovered/Resolved]
  - Breast pain [Not Recovered/Not Resolved]
  - Vaginal haemorrhage [Unknown]
  - Dysmenorrhoea [Not Recovered/Not Resolved]
  - Exposure during pregnancy [Unknown]

NARRATIVE: CASE EVENT DATE: 20160820
